FAERS Safety Report 6580043-2 (Version None)
Quarter: 2010Q1

REPORT INFORMATION
  Report Type: 
  Country: None (occurrence: None)
  Receive Date: 20100212
  Receipt Date: 20100202
  Transmission Date: 20100710
  Serious: Yes (Hospitalization)
  Sender: FDA-Public Use
  Company Number: US-WYE-H11789709

PATIENT
  Sex: Female
  Weight: 64.83 kg

DRUGS (17)
  1. METHYLNALTREXONE BROMIDE [Suspect]
     Indication: CONSTIPATION
     Route: 058
     Dates: start: 20090622, end: 20091002
  2. LORAZEPAM [Concomitant]
     Indication: ANXIETY
     Route: 048
     Dates: start: 20080101
  3. GEODON [Concomitant]
     Indication: DEPRESSION
     Route: 048
     Dates: start: 20080101
  4. VITAMIN C [Concomitant]
     Indication: NUTRITIONAL SUPPORT
     Route: 048
     Dates: start: 19990101
  5. VITAMIN E [Concomitant]
     Indication: NUTRITIONAL SUPPORT
     Route: 048
     Dates: start: 19990101
  6. VITAMIN B-12 [Concomitant]
     Indication: NUTRITIONAL SUPPORT
     Route: 048
     Dates: start: 19990101
  7. CALCIUM [Concomitant]
     Indication: NUTRITIONAL SUPPORT
     Route: 048
     Dates: start: 19990101
  8. PROVENTIL [Concomitant]
     Indication: ASTHMA
     Dosage: 90 MG, 2 PUFFS PRN
     Route: 055
     Dates: start: 19800101
  9. FLONASE [Concomitant]
     Indication: SEASONAL ALLERGY
     Dosage: 50 MCG, 2 SPRAYS DAILY
     Route: 045
     Dates: start: 20000101
  10. LAMOTRIGINE [Concomitant]
     Indication: DEPRESSION
     Route: 048
     Dates: start: 20080101
  11. FLEXERIL [Concomitant]
     Indication: MUSCLE RELAXANT THERAPY
     Route: 048
     Dates: start: 20060101
  12. MORPHINE SULFATE [Concomitant]
     Indication: OSTEOARTHRITIS
     Route: 048
     Dates: start: 20060101
  13. MORPHINE SULFATE [Concomitant]
     Indication: PAIN
  14. OXYCODONE HCL AND ACETAMINOPHEN [Concomitant]
     Indication: OSTEOARTHRITIS
     Dosage: 5-325 MG, 2 TABS, 3 TIMES A DAY
     Route: 048
     Dates: start: 20090915
  15. OXYCODONE HCL AND ACETAMINOPHEN [Concomitant]
     Indication: PAIN
  16. ACETYLSALICYLIC ACID [Concomitant]
     Indication: PAIN
     Route: 048
     Dates: start: 20091003
  17. CARBAMAZEPINE [Concomitant]
     Indication: DEPRESSION
     Route: 048
     Dates: start: 20080101

REACTIONS (2)
  - CONDITION AGGRAVATED [None]
  - DEPRESSION [None]
